FAERS Safety Report 13468650 (Version 1)
Quarter: 2017Q2

REPORT INFORMATION
  Report Type: Spontaneous
  Country: US (occurrence: US)
  Receive Date: 20170421
  Receipt Date: 20170421
  Transmission Date: 20170830
  Serious: Yes (Hospitalization, Other)
  Sender: FDA-Public Use
  Company Number: US-JAZZ-2017-US-004849

PATIENT
  Age: 60 Year
  Sex: Male

DRUGS (3)
  1. CLOZAPINE. [Suspect]
     Active Substance: CLOZAPINE
     Dosage: 100 MG, QD
     Route: 048
  2. CLOZAPINE. [Suspect]
     Active Substance: CLOZAPINE
     Indication: SCHIZOPHRENIA
     Dosage: 125 MG, QD (NIGHTLY)
     Route: 048
     Dates: start: 201502
  3. CLOZAPINE. [Suspect]
     Active Substance: CLOZAPINE
     Dosage: 12.5 MG, QD
     Route: 048

REACTIONS (9)
  - Delirium [Recovering/Resolving]
  - Transient ischaemic attack [Recovering/Resolving]
  - Bundle branch block left [Unknown]
  - Accidental overdose [Unknown]
  - Fall [Recovering/Resolving]
  - General physical health deterioration [Recovering/Resolving]
  - Electrocardiogram QT prolonged [Unknown]
  - Orthostatic hypotension [Recovering/Resolving]
  - Pulmonary embolism [Recovering/Resolving]
